FAERS Safety Report 14038429 (Version 11)
Quarter: 2018Q3

REPORT INFORMATION
  Report Type: Spontaneous
  Country: JP (occurrence: JP)
  Receive Date: 20171004
  Receipt Date: 20180826
  Transmission Date: 20181010
  Serious: Yes (Hospitalization, Other)
  Sender: FDA-Public Use
  Company Number: JP-009507513-1710JPN000176J

PATIENT
  Age: 68 Year
  Sex: Male
  Weight: 76 kg

DRUGS (2)
  1. KEYTRUDA [Suspect]
     Active Substance: PEMBROLIZUMAB
     Indication: SQUAMOUS CELL CARCINOMA OF LUNG
     Dosage: 200 MG, Q3W
     Route: 041
     Dates: start: 20170427, end: 20170908
  2. KEYTRUDA [Suspect]
     Active Substance: PEMBROLIZUMAB
     Indication: NON-SMALL CELL LUNG CANCER METASTATIC

REACTIONS (13)
  - Oesophagitis [Recovering/Resolving]
  - Duodenal ulcer [Recovering/Resolving]
  - Gastric ulcer [Recovering/Resolving]
  - Oesophageal ulcer [Unknown]
  - Duodenal ulcer [Unknown]
  - Lymphocytic infiltration [Unknown]
  - Duodenitis [Recovering/Resolving]
  - Gastritis erosive [Unknown]
  - Enteritis [Recovering/Resolving]
  - Gastric mucosa erythema [Unknown]
  - Gastrointestinal wall thickening [Unknown]
  - Gastrointestinal oedema [Unknown]
  - Erosive oesophagitis [Unknown]

NARRATIVE: CASE EVENT DATE: 20170922
